FAERS Safety Report 15994129 (Version 4)
Quarter: 2019Q3

REPORT INFORMATION
  Report Type: Report from Study
  Country: CA (occurrence: CA)
  Receive Date: 20190222
  Receipt Date: 20190708
  Transmission Date: 20191004
  Serious: Yes (Other)
  Sender: FDA-Public Use
  Company Number: CA-ROCHE-2263723

PATIENT
  Age: 61 Year
  Sex: Female

DRUGS (5)
  1. ENBREL [Concomitant]
     Active Substance: ETANERCEPT
  2. ACTEMRA [Suspect]
     Active Substance: TOCILIZUMAB
     Indication: RHEUMATOID ARTHRITIS
     Route: 042
     Dates: start: 20160413, end: 20180613
  3. ACTEMRA [Suspect]
     Active Substance: TOCILIZUMAB
     Route: 042
     Dates: start: 20180723, end: 20190624
  4. TYLENOL [Concomitant]
     Active Substance: ACETAMINOPHEN
     Dosage: AS REQUIRED
     Route: 065
  5. METHOTREXATE. [Concomitant]
     Active Substance: METHOTREXATE

REACTIONS (12)
  - Heart rate decreased [Unknown]
  - Infection [Not Recovered/Not Resolved]
  - Blister [Recovering/Resolving]
  - Localised infection [Not Recovered/Not Resolved]
  - Oral herpes [Recovering/Resolving]
  - Pain [Recovered/Resolved]
  - Blood pressure fluctuation [Unknown]
  - Blister [Unknown]
  - Blood pressure systolic increased [Unknown]
  - Nasopharyngitis [Unknown]
  - Pruritus [Recovering/Resolving]
  - Pharyngitis [Recovered/Resolved]

NARRATIVE: CASE EVENT DATE: 2019
